FAERS Safety Report 22892670 (Version 5)
Quarter: 2023Q4

REPORT INFORMATION
  Report Type: Spontaneous
  Country: CN (occurrence: CN)
  Receive Date: 20230901
  Receipt Date: 20231120
  Transmission Date: 20240110
  Serious: Yes (Hospitalization, Other)
  Sender: FDA-Public Use
  Company Number: CN-GILEAD-2023-0641649

PATIENT
  Age: 52 Year
  Sex: Male

DRUGS (1)
  1. VEMLIDY [Suspect]
     Active Substance: TENOFOVIR ALAFENAMIDE FUMARATE
     Indication: Hepatitis B
     Dosage: 1 DOSAGE FORM, QD
     Route: 048
     Dates: start: 202306

REACTIONS (8)
  - Decreased appetite [Not Recovered/Not Resolved]
  - Renal impairment [Unknown]
  - Oedematous kidney [Recovered/Resolved]
  - Hepatic function abnormal [Unknown]
  - Renal pain [Recovered/Resolved]
  - Alpha 1 foetoprotein abnormal [Unknown]
  - Suspected counterfeit product [Unknown]
  - Inflammation [Recovered/Resolved]

NARRATIVE: CASE EVENT DATE: 20230101
